FAERS Safety Report 13879522 (Version 1)
Quarter: 2017Q3

REPORT INFORMATION
  Report Type: Spontaneous
  Country: CA (occurrence: CA)
  Receive Date: 20170817
  Receipt Date: 20170817
  Transmission Date: 20171127
  Serious: Yes (Other)
  Sender: FDA-Public Use
  Company Number: CA-TEVA-796205ACC

PATIENT
  Age: 17 Year
  Sex: Male
  Weight: 78 kg

DRUGS (9)
  1. VINCRISTINE SULFATE. [Suspect]
     Active Substance: VINCRISTINE SULFATE
     Indication: MEDULLOBLASTOMA
     Route: 042
  2. TEMOZOLOMIDE. [Concomitant]
     Active Substance: TEMOZOLOMIDE
  3. VINCRISTINE SULFATE. [Suspect]
     Active Substance: VINCRISTINE SULFATE
     Route: 042
  4. CISPLATIN INJECTION [Suspect]
     Active Substance: CISPLATIN
     Route: 042
  5. BEVACIZUMAB. [Concomitant]
     Active Substance: BEVACIZUMAB
  6. IRINOTECAN [Concomitant]
     Active Substance: IRINOTECAN
  7. CYCLOPHOSPHAMIDE. [Concomitant]
     Active Substance: CYCLOPHOSPHAMIDE
  8. LOMUSTINE. [Concomitant]
     Active Substance: LOMUSTINE
  9. CISPLATIN INJECTION [Suspect]
     Active Substance: CISPLATIN
     Indication: MEDULLOBLASTOMA
     Route: 042

REACTIONS (1)
  - Ototoxicity [Unknown]
